FAERS Safety Report 16208943 (Version 2)
Quarter: 2019Q2

REPORT INFORMATION
  Report Type: Spontaneous
  Country: US (occurrence: US)
  Receive Date: 20190417
  Receipt Date: 20190506
  Transmission Date: 20190711
  Serious: No
  Sender: FDA-Public Use
  Company Number: US-SA-2019SA104793

PATIENT
  Age: 82 Year
  Sex: Female

DRUGS (1)
  1. PRALUENT [Suspect]
     Active Substance: ALIROCUMAB
     Indication: BLOOD CHOLESTEROL
     Dosage: 75 MG, QOW
     Dates: start: 2018

REACTIONS (4)
  - Injury associated with device [Unknown]
  - Swelling [Recovering/Resolving]
  - Product administered at inappropriate site [Unknown]
  - Device use issue [Unknown]

NARRATIVE: CASE EVENT DATE: 20190410
